FAERS Safety Report 12597372 (Version 1)
Quarter: 2016Q3

REPORT INFORMATION
  Report Type: Spontaneous
  Country: None (occurrence: None)
  Receive Date: 20160726
  Receipt Date: 20160726
  Transmission Date: 20161109
  Serious: Yes (Other)
  Sender: FDA-Public Use
  Company Number: None

PATIENT
  Age: 67 Year
  Sex: Female
  Weight: 125 kg

DRUGS (2)
  1. VANCOMYCIN, 1500 MG [Suspect]
     Active Substance: VANCOMYCIN
     Indication: BACTERAEMIA
     Route: 041
     Dates: start: 20160719, end: 20160720
  2. VANCOMYCIN, 1500 MG [Suspect]
     Active Substance: VANCOMYCIN
     Indication: STAPHYLOCOCCAL INFECTION
     Route: 041
     Dates: start: 20160719, end: 20160720

REACTIONS (1)
  - Urticaria [None]

NARRATIVE: CASE EVENT DATE: 20160723
